FAERS Safety Report 6859189-7 (Version None)
Quarter: 2010Q3

REPORT INFORMATION
  Report Type: 
  Country: None (occurrence: None)
  Receive Date: 20100719
  Receipt Date: 20080222
  Transmission Date: 20110219
  Serious: No
  Sender: FDA-Public Use
  Company Number: US-PFIZER INC-2008018161

PATIENT
  Sex: Female
  Weight: 76.2 kg

DRUGS (3)
  1. CHANTIX [Suspect]
     Indication: SMOKING CESSATION THERAPY
     Route: 048
     Dates: start: 20080101
  2. FENTANYL [Concomitant]
     Indication: PAIN
  3. NORCO [Concomitant]
     Indication: PAIN

REACTIONS (5)
  - ASTHENIA [None]
  - MALAISE [None]
  - NAUSEA [None]
  - PAIN [None]
  - VOMITING [None]
